FAERS Safety Report 5956324-X (Version None)
Quarter: 2008Q4

REPORT INFORMATION
  Report Type: 
  Country: None (occurrence: None)
  Receive Date: 20081118
  Receipt Date: 20081111
  Transmission Date: 20090506
  Serious: Yes (Other)
  Sender: FDA-Public Use
  Company Number: PHBS2008IT06190

PATIENT
  Age: 38 Year
  Sex: Female

DRUGS (2)
  1. TOLEP [Suspect]
     Indication: GRAND MAL CONVULSION
     Dosage: 600 MG/DAY
     Route: 065
  2. FOLIC ACID [Concomitant]

REACTIONS (3)
  - CAESAREAN SECTION [None]
  - DRUG EXPOSURE DURING PREGNANCY [None]
  - NORMAL NEWBORN [None]
